FAERS Safety Report 17443177 (Version 1)
Quarter: 2020Q1

REPORT INFORMATION
  Report Type: Spontaneous
  Country: US (occurrence: US)
  Receive Date: 20200206
  Receipt Date: 20200206
  Transmission Date: 20200409
  Serious: No
  Sender: FDA-Public Use
  Company Number: None

PATIENT
  Age: 40 Year
  Sex: Female

DRUGS (6)
  1. TALTZ [Suspect]
     Active Substance: IXEKIZUMAB
     Dosage: ?          OTHER FREQUENCY:EVERY 4 WEEKS;?
     Route: 058
     Dates: start: 20190402
  2. ASPIRIN. [Concomitant]
     Active Substance: ASPIRIN
  3. LORAZEPAM. [Concomitant]
     Active Substance: LORAZEPAM
  4. BUT/A[A[/CAF [Concomitant]
  5. TRAMADOL. [Concomitant]
     Active Substance: TRAMADOL
  6. DICLOFENAC [Concomitant]
     Active Substance: DICLOFENAC

REACTIONS (4)
  - Rash [None]
  - Condition aggravated [None]
  - Knee arthroplasty [None]
  - Stress [None]

NARRATIVE: CASE EVENT DATE: 20200127
